FAERS Safety Report 12085504 (Version 7)
Quarter: 2018Q1

REPORT INFORMATION
  Report Type: Spontaneous
  Country: JP (occurrence: JP)
  Receive Date: 20160217
  Receipt Date: 20180216
  Transmission Date: 20180508
  Serious: Yes (Life-Threatening, Hospitalization, Other)
  Sender: FDA-Public Use
  Company Number: JP-PFIZER INC-2016081960

PATIENT
  Age: 17 Month
  Sex: Female

DRUGS (7)
  1. ONON [Suspect]
     Active Substance: PRANLUKAST
     Indication: RESPIRATORY SYMPTOM
     Dosage: UNK
     Route: 048
     Dates: start: 20150918, end: 20150928
  2. PULSMARIN A [Concomitant]
     Active Substance: AMBROXOL HYDROCHLORIDE
     Indication: RESPIRATORY SYMPTOM
     Dosage: UNK
     Route: 048
     Dates: start: 20150918, end: 20150928
  3. PULMICORT TURBUHALER [Concomitant]
     Active Substance: BUDESONIDE
     Indication: RESPIRATORY SYMPTOM
     Dosage: UNK
     Route: 048
     Dates: start: 20150924, end: 20150928
  4. ZITHROMAC [Suspect]
     Active Substance: AZITHROMYCIN DIHYDRATE
     Indication: RESPIRATORY SYMPTOM
     Dosage: UNK
     Route: 048
     Dates: start: 20150925, end: 20150928
  5. ASVERIN (TIPEPIDINE HIBENZATE) [Concomitant]
     Active Substance: TIPEPIDINE HIBENZATE
     Indication: RESPIRATORY SYMPTOM
     Dosage: UNK
     Route: 048
     Dates: start: 20150918, end: 20150928
  6. MUCODYNE [Concomitant]
     Active Substance: CARBOCYSTEINE
     Dosage: UNK
     Dates: start: 20150918
  7. LAC-B [Concomitant]
     Active Substance: BIFIDOBACTERIUM SPP.
     Indication: RESPIRATORY SYMPTOM
     Dosage: UNK
     Route: 048
     Dates: start: 20150918, end: 20150928

REACTIONS (3)
  - Drug reaction with eosinophilia and systemic symptoms [Recovering/Resolving]
  - Hypoxia [Recovering/Resolving]
  - Rash [Recovering/Resolving]

NARRATIVE: CASE EVENT DATE: 20150928
